FAERS Safety Report 23579519 (Version 1)
Quarter: 2024Q1

REPORT INFORMATION
  Report Type: Spontaneous
  Country: IT (occurrence: IT)
  Receive Date: 20240229
  Receipt Date: 20240229
  Transmission Date: 20240410
  Serious: Yes (Hospitalization, Other)
  Sender: FDA-Public Use
  Company Number: IT-SUN PHARMACEUTICAL INDUSTRIES LTD-2024RR-433577

PATIENT
  Age: 76 Year
  Sex: Male

DRUGS (2)
  1. PREGABALIN [Suspect]
     Active Substance: PREGABALIN
     Indication: Arthralgia
     Dosage: TAKEN 8 TABLETS, I DON^T KNOW THE DOSAGE
     Route: 048
     Dates: start: 20231103
  2. TIZANIDINE [Suspect]
     Active Substance: TIZANIDINE
     Indication: Arthralgia
     Dosage: 4 MILLIGRAM, 32 MG
     Route: 048
     Dates: start: 20231103

REACTIONS (4)
  - Sopor [Recovering/Resolving]
  - Medication error [Recovering/Resolving]
  - Hypotension [Recovering/Resolving]
  - Syncope [Recovering/Resolving]

NARRATIVE: CASE EVENT DATE: 20231103
